FAERS Safety Report 5795820-5 (Version None)
Quarter: 2008Q3

REPORT INFORMATION
  Report Type: 
  Country: None (occurrence: None)
  Receive Date: 20080701
  Receipt Date: 20080626
  Transmission Date: 20090109
  Serious: Yes (Death, Hospitalization)
  Sender: FDA-Public Use
  Company Number: NO-BAYER-200817604GPV

PATIENT
  Age: 87 Year
  Sex: Female

DRUGS (4)
  1. CIPROFLOXACIN HCL [Suspect]
     Indication: URINARY TRACT INFECTION
     Route: 065
     Dates: start: 20080301, end: 20080318
  2. CLINDAMYCIN HCL [Suspect]
     Indication: SINUSITIS
     Route: 048
     Dates: start: 20080110, end: 20080318
  3. FEXOFENADINE HCL [Concomitant]
     Indication: DRUG USE FOR UNKNOWN INDICATION
     Route: 048
     Dates: end: 20080318
  4. RENITEC [Concomitant]
     Indication: DRUG USE FOR UNKNOWN INDICATION
     Route: 048
     Dates: end: 20080318

REACTIONS (3)
  - CLOSTRIDIUM DIFFICILE COLITIS [None]
  - DIARRHOEA [None]
  - RENAL FAILURE ACUTE [None]
